FAERS Safety Report 14555172 (Version 1)
Quarter: 2018Q1

REPORT INFORMATION
  Report Type: Report from Study
  Country: US (occurrence: US)
  Receive Date: 20180220
  Receipt Date: 20180220
  Transmission Date: 20180509
  Serious: Yes (Hospitalization)
  Sender: FDA-Public Use
  Company Number: US-ACTELION-A-NJ2018-166892

PATIENT
  Age: 86 Year
  Sex: Female
  Weight: 99.77 kg

DRUGS (3)
  1. TRACLEER [Suspect]
     Active Substance: BOSENTAN
     Indication: PULMONARY ARTERIAL HYPERTENSION
     Dosage: 125 MG, BID
     Route: 048
  2. ADCIRCA [Concomitant]
     Active Substance: TADALAFIL
  3. ORENITRAM [Suspect]
     Active Substance: TREPROSTINIL
     Indication: PRODUCT USED FOR UNKNOWN INDICATION
     Dosage: 5.25 MG, Q8H
     Route: 065

REACTIONS (9)
  - Haemoglobin decreased [Unknown]
  - Asthenia [Unknown]
  - Vomiting [Unknown]
  - Hypotension [Unknown]
  - Influenza [Unknown]
  - Pneumonia [Unknown]
  - Dyspnoea [Unknown]
  - Aspiration [Unknown]
  - Nausea [Unknown]
